FAERS Safety Report 8532979-0 (Version None)
Quarter: 2012Q3

REPORT INFORMATION
  Report Type: 
  Country: None (occurrence: None)
  Receive Date: 20120712
  Receipt Date: 20120702
  Transmission Date: 20120928
  Serious: Yes (Other)
  Sender: FDA-Public Use
  Company Number: 2012HGS-003784

PATIENT
  Age: 70 Year
  Sex: Male
  Weight: 68.9467 kg

DRUGS (17)
  1. METHOTREXATE [Concomitant]
  2. ASCORBIC ACID [Concomitant]
  3. MULTIVITAMIN (VIGRAN) (ERGOCALCIFEROL, ASCORBIC ACID, PYRIDOXINE HYDRO [Concomitant]
  4. PROBIOTIC (BIFIDOBACTERIUM LACTIS) [Concomitant]
  5. LIPITOR [Concomitant]
  6. METOPROLOL ER (METOPROLOL) [Concomitant]
  7. VESICARE [Concomitant]
  8. BENLYSTA [Suspect]
     Indication: SYSTEMIC LUPUS ERYTHEMATOSUS
     Dosage: 1 IN 28 D, INTRAVENOUS DRIP
     Route: 041
     Dates: start: 20111001
  9. CURCUMIN [Concomitant]
  10. FOLIC ACID [Concomitant]
  11. LOVENOX [Concomitant]
  12. PLAQUENIL [Concomitant]
  13. LEVOTHYROXINE SODIUM [Concomitant]
  14. VITAMIN D [Concomitant]
  15. IRON [Concomitant]
  16. CALCIUM CARBONATE [Concomitant]
  17. PLAVIX [Concomitant]

REACTIONS (3)
  - ACTINIC KERATOSIS [None]
  - RHINORRHOEA [None]
  - MEMORY IMPAIRMENT [None]
